FAERS Safety Report 11057581 (Version 1)
Quarter: 2015Q2

REPORT INFORMATION
  Report Type: Report from Study
  Country: US (occurrence: US)
  Receive Date: 20150422
  Receipt Date: 20150422
  Transmission Date: 20150821
  Serious: Yes (Other)
  Sender: FDA-Public Use
  Company Number: PHEH2015US007007

PATIENT
  Age: 63 Year
  Sex: Female

DRUGS (1)
  1. FEMARA [Suspect]
     Active Substance: LETROZOLE
     Indication: NEOPLASM MALIGNANT
     Route: 048
     Dates: start: 201106

REACTIONS (2)
  - Pulmonary mass [Unknown]
  - Metastases to lung [Unknown]

NARRATIVE: CASE EVENT DATE: 20111001
